FAERS Safety Report 24091217 (Version 2)
Quarter: 2024Q3

REPORT INFORMATION
  Report Type: Spontaneous
  Country: SE (occurrence: SE)
  Receive Date: 20240715
  Receipt Date: 20240717
  Transmission Date: 20241017
  Serious: Yes (Death, Other)
  Sender: MERCK
  Company Number: None

PATIENT
  Age: 59 Year
  Sex: Male
  Weight: 86 kg

DRUGS (4)
  1. TEMODAL [Suspect]
     Active Substance: TEMOZOLOMIDE
     Indication: Metastases to central nervous system
     Dosage: 3 CAPSULES/DAY FOR 5 DAYS EVERY 4 WEEKS
     Route: 048
     Dates: start: 20240326, end: 20240505
  2. TEMODAL [Suspect]
     Active Substance: TEMOZOLOMIDE
     Indication: Large granular lymphocytosis
  3. TEMODAL [Suspect]
     Active Substance: TEMOZOLOMIDE
     Indication: Metastases to lung
  4. TEMODAL [Suspect]
     Active Substance: TEMOZOLOMIDE
     Indication: Leiomyosarcoma

REACTIONS (4)
  - Walled-off pancreatic necrosis [Fatal]
  - Cor pulmonale acute [Fatal]
  - Pulmonary embolism [Fatal]
  - Gastric ulcer [Fatal]

NARRATIVE: CASE EVENT DATE: 20240419
